FAERS Safety Report 21767914 (Version 1)
Quarter: 2022Q4

REPORT INFORMATION
  Report Type: Spontaneous
  Country: HR (occurrence: HR)
  Receive Date: 20221222
  Receipt Date: 20221222
  Transmission Date: 20230113
  Serious: Yes (Other)
  Sender: FDA-Public Use
  Company Number: HR-009507513-2212HRV007460

PATIENT
  Age: 67 Year
  Sex: Female

DRUGS (3)
  1. KEYTRUDA [Suspect]
     Active Substance: PEMBROLIZUMAB
  2. PEMETREXED [Suspect]
     Active Substance: PEMETREXED
  3. CARBOPLATIN [Suspect]
     Active Substance: CARBOPLATIN

REACTIONS (12)
  - Brain operation [Unknown]
  - Hepatitis [Unknown]
  - Aphasia [Unknown]
  - Speech disorder [Unknown]
  - Blood bilirubin abnormal [Unknown]
  - Bilirubin conjugated abnormal [Unknown]
  - Blood alkaline phosphatase abnormal [Unknown]
  - Aspartate aminotransferase abnormal [Unknown]
  - Alanine aminotransferase abnormal [Unknown]
  - Gamma-glutamyltransferase abnormal [Unknown]
  - Jaundice [Unknown]
  - Nausea [Unknown]

NARRATIVE: CASE EVENT DATE: 20221206
